FAERS Safety Report 5149892-1 (Version None)
Quarter: 2006Q4

REPORT INFORMATION
  Report Type: 
  Country: None (occurrence: None)
  Receive Date: 20061113
  Receipt Date: 20060420
  Transmission Date: 20070319
  Serious: Yes (Other)
  Sender: FDA-Public Use
  Company Number: US-ELI_LILLY_AND_COMPANY-US200604003434

PATIENT
  Age: 69 Year
  Sex: Female

DRUGS (9)
  1. DURAGESIC-100 [Concomitant]
  2. CYMBALTA [Suspect]
     Indication: PAIN
     Dosage: 30 MG, UNK
     Dates: start: 20060415, end: 20060417
  3. CYMBALTA [Suspect]
     Dosage: 20 MG, UNK
  4. LISINOPRIL [Concomitant]
     Dosage: 10 MG, UNK
  5. LISINOPRIL [Concomitant]
     Dosage: 20 MG, UNK
  6. ACEBUTOLOL [Concomitant]
  7. XALATAN                                 /SWE/ [Concomitant]
     Indication: GLAUCOMA
  8. NITROGLYCERIN ^PHARMACIA + UPJOHN^ [Concomitant]
     Indication: OESOPHAGEAL SPASM
  9. CLONAZEPAM [Concomitant]
     Indication: INSOMNIA
     Dosage: 1 MG, UNK

REACTIONS (4)
  - BLOOD PRESSURE INCREASED [None]
  - HYPERTENSION [None]
  - INSOMNIA [None]
  - PAIN [None]
